FAERS Safety Report 22311313 (Version 1)
Quarter: 2023Q2

REPORT INFORMATION
  Report Type: Spontaneous
  Country: US (occurrence: US)
  Receive Date: 20230511
  Receipt Date: 20230511
  Transmission Date: 20230721
  Serious: Yes (Other)
  Sender: FDA-Public Use
  Company Number: US-AMGEN-USASP2023077983

PATIENT
  Age: 21 Year
  Sex: Male

DRUGS (3)
  1. IVABRADINE [Suspect]
     Active Substance: IVABRADINE
     Indication: Sinus tachycardia
     Dosage: UNK
     Route: 065
  2. IVABRADINE [Suspect]
     Active Substance: IVABRADINE
     Indication: Off label use
  3. BISOPROLOL [Concomitant]
     Active Substance: BISOPROLOL
     Indication: Sinus tachycardia
     Dosage: UNK
     Route: 065

REACTIONS (10)
  - Bradycardia [Unknown]
  - Dysmorphism [Unknown]
  - Dolichocephaly [Unknown]
  - Blood lactic acid increased [Unknown]
  - Blood pyruvic acid increased [Unknown]
  - Iron binding capacity total increased [Unknown]
  - Alanine aminotransferase increased [Unknown]
  - Off label use [Unknown]
  - Sinus bradycardia [Unknown]
  - Blood pressure increased [Unknown]
